FAERS Safety Report 21934317 (Version 1)
Quarter: 2023Q1

REPORT INFORMATION
  Report Type: Spontaneous
  Country: TR (occurrence: TR)
  Receive Date: 20230201
  Receipt Date: 20230201
  Transmission Date: 20230418
  Serious: Yes (Other)
  Sender: FDA-Public Use
  Company Number: TR-WOCKHARDT BIO AG-2023WBA000015

PATIENT
  Age: 42 Year
  Sex: Male

DRUGS (1)
  1. MINOXIDIL [Suspect]
     Active Substance: MINOXIDIL
     Indication: Androgenetic alopecia
     Dosage: 120 ML PER MONTH
     Route: 061

REACTIONS (1)
  - Optic ischaemic neuropathy [Recovering/Resolving]
